FAERS Safety Report 18499287 (Version 1)
Quarter: 2020Q4

REPORT INFORMATION
  Report Type: Report from Study
  Country: US (occurrence: US)
  Receive Date: 20201112
  Receipt Date: 20201112
  Transmission Date: 20210114
  Serious: Yes (Other)
  Sender: FDA-Public Use
  Company Number: US-JNJFOC-20201108291

PATIENT
  Age: 28 Year
  Sex: Male

DRUGS (3)
  1. SPRAVATO [Suspect]
     Active Substance: ESKETAMINE
     Indication: DEPRESSION
     Dates: start: 20200915, end: 20200915
  2. SPRAVATO [Suspect]
     Active Substance: ESKETAMINE
     Dosage: 84MG, 10 TOTAL DOSES
     Dates: start: 20200918, end: 20201026
  3. SPRAVATO [Suspect]
     Active Substance: ESKETAMINE
     Dates: start: 20201030, end: 20201030

REACTIONS (2)
  - Crying [Recovered/Resolved]
  - Dissociation [Recovered/Resolved]

NARRATIVE: CASE EVENT DATE: 20201030
